FAERS Safety Report 20576301 (Version 1)
Quarter: 2022Q1

REPORT INFORMATION
  Report Type: Spontaneous
  Country: US (occurrence: US)
  Receive Date: 20220310
  Receipt Date: 20220310
  Transmission Date: 20220424
  Serious: Yes (Other)
  Sender: FDA-Public Use
  Company Number: US-STRIDES ARCOLAB LIMITED-2022SP001249

PATIENT
  Sex: Female

DRUGS (43)
  1. AZATHIOPRINE [Suspect]
     Active Substance: AZATHIOPRINE
     Indication: Pemphigus
     Dosage: 150 MILLIGRAM/DAY
     Route: 065
  2. METHOTREXATE [Suspect]
     Active Substance: METHOTREXATE
     Indication: Pemphigus
     Dosage: UNK
     Route: 065
  3. METHOTREXATE [Suspect]
     Active Substance: METHOTREXATE
     Dosage: 10 MILLIGRAM/WEEK (RECEIVED DURING LOADING DOSE OF RITUXIMAB)
     Route: 065
     Dates: start: 201606
  4. METHOTREXATE [Suspect]
     Active Substance: METHOTREXATE
     Dosage: 15 MILLIGRAM/WEEK (RECEIVED ON RELAPSE OF PEMPHIGUS VULGARIS)
     Route: 065
     Dates: start: 2017
  5. METHOTREXATE [Suspect]
     Active Substance: METHOTREXATE
     Dosage: UNK
     Route: 065
  6. MONTELUKAST [Suspect]
     Active Substance: MONTELUKAST SODIUM
     Indication: Anaphylaxis prophylaxis
     Dosage: 10 MILLIGRAM (RECEIVED ONCE DURING RITUXIMAB DESENSITISATION)
     Route: 048
     Dates: start: 2018
  7. PREDNISOLONE [Suspect]
     Active Substance: PREDNISOLONE
     Indication: Pemphigus
     Dosage: 100 MILLIGRAM/DAY (RECEIVED DURING LOADING DOSE OF RITUXIMAB)
     Route: 065
     Dates: start: 201606
  8. PREDNISOLONE [Suspect]
     Active Substance: PREDNISOLONE
     Dosage: 40 MILLIGRAM/DAY (RECEIVED DURING LOADING DOSE OF RITUXIMAB)
     Route: 065
     Dates: start: 2016
  9. PREDNISOLONE [Suspect]
     Active Substance: PREDNISOLONE
     Dosage: 20 MILLIGRAM/DAY (RECEIVED DURING RELAPSE OF PEMPHIGUS VULGARIS)
     Route: 065
     Dates: start: 2017
  10. PREDNISOLONE [Suspect]
     Active Substance: PREDNISOLONE
     Dosage: 20 MILLIGRAM/DAY (RECEIVED ONCE DURING RITUXIMAB DESENSITISATION)
     Route: 065
     Dates: start: 2018
  11. PREDNISOLONE [Suspect]
     Active Substance: PREDNISOLONE
     Dosage: 20 MILLIGRAM/DAY (RECEIVED DURING OCRELIZUMAB THERAPY)
     Route: 065
     Dates: start: 2018
  12. PREDNISOLONE [Suspect]
     Active Substance: PREDNISOLONE
     Dosage: 10 MILLIGRAM/DAY (RECEIVED DURING OCRELIZUMAB THERAPY)
     Route: 065
     Dates: start: 2019
  13. METHYLPREDNISOLONE [Suspect]
     Active Substance: METHYLPREDNISOLONE
     Indication: Pemphigus
     Dosage: 20 MILLIGRAM/DAY
     Route: 065
  14. METHYLPREDNISOLONE [Suspect]
     Active Substance: METHYLPREDNISOLONE
     Indication: Anaphylaxis prophylaxis
     Dosage: 100 MILLIGRAM (RECEIVED DURING LOADING DOSE OF RITUXIMAB)
     Route: 042
     Dates: start: 201606
  15. METHYLPREDNISOLONE [Suspect]
     Active Substance: METHYLPREDNISOLONE
     Dosage: 125 MILLIGRAM (RECEIVED DURING RELAPSE OF PEMPHIGUS VULGARIS)
     Route: 042
     Dates: start: 2017
  16. METHYLPREDNISOLONE [Suspect]
     Active Substance: METHYLPREDNISOLONE
     Dosage: 50 MILLIGRAM (RECEIVED DURING RITUXIMAB DESENSITISATION)
     Route: 042
     Dates: start: 2018
  17. METHYLPREDNISOLONE [Suspect]
     Active Substance: METHYLPREDNISOLONE
     Dosage: 125 MILLIGRAM (RECEIVED DURING OCRELIZUMAB THERAPY)
     Route: 042
     Dates: start: 2018
  18. HUMAN IMMUNOGLOBULIN G [Suspect]
     Active Substance: HUMAN IMMUNOGLOBULIN G
     Indication: Pemphigus
     Dosage: 180 MILLIGRAM/MONTH
     Route: 042
  19. DIPHENHYDRAMINE [Suspect]
     Active Substance: DIPHENHYDRAMINE
     Indication: Pemphigus
     Dosage: 25 MILLIGRAM (RECEIVED DURING LOADING DOSE OF RITUXIMAB)
     Route: 042
     Dates: start: 201606
  20. DIPHENHYDRAMINE [Suspect]
     Active Substance: DIPHENHYDRAMINE
     Indication: Anaphylaxis prophylaxis
     Dosage: 50 MILLIGRAM (RECEIVED DURING RELAPSE OF PEMPHIGUS VULGARIS)
     Route: 042
     Dates: start: 2017
  21. DIPHENHYDRAMINE [Suspect]
     Active Substance: DIPHENHYDRAMINE
     Dosage: 50 MILLIGRAM (RECEIVED DURING RITUXIMAB DESENSITISATION)
     Route: 042
     Dates: start: 2018
  22. DIPHENHYDRAMINE [Suspect]
     Active Substance: DIPHENHYDRAMINE
     Dosage: 50 MILLIGRAM (RECEIVED DURING OCRELIZUMAB THERAPY)
     Route: 042
     Dates: start: 2018
  23. DIPHENHYDRAMINE [Suspect]
     Active Substance: DIPHENHYDRAMINE
     Dosage: UNK
     Route: 065
  24. ACETAMINOPHEN [Suspect]
     Active Substance: ACETAMINOPHEN
     Indication: Anaphylaxis prophylaxis
     Dosage: 650 MILLIGRAM (RECEIVED ON RELAPSE OF PEMPHIGUS VULGARIS)
     Route: 048
     Dates: start: 2017
  25. ACETAMINOPHEN [Suspect]
     Active Substance: ACETAMINOPHEN
     Dosage: 650 MILLIGRAM (RECEIVED DURING OCRELIZUMAB THERAPY)
     Route: 048
     Dates: start: 2018
  26. ACETAMINOPHEN [Suspect]
     Active Substance: ACETAMINOPHEN
     Dosage: UNK
     Route: 065
  27. ASPIRIN [Suspect]
     Active Substance: ASPIRIN
     Indication: Anaphylaxis prophylaxis
     Dosage: 325 MILLIGRAM (RECEIVED ONCE DURING RITUXIMAB DESENSITISATION)
     Route: 048
     Dates: start: 2018
  28. FAMOTIDINE [Suspect]
     Active Substance: FAMOTIDINE
     Indication: Anaphylaxis prophylaxis
     Dosage: 20 MILLIGRAM (RECEIVED ONCE DURING RITUXIMAB DESENSITISATION)
     Route: 042
     Dates: start: 2018
  29. DAPSONE [Suspect]
     Active Substance: DAPSONE
     Indication: Pemphigus
     Dosage: UNK
     Route: 065
  30. DAPSONE [Suspect]
     Active Substance: DAPSONE
     Dosage: 25 MILLIGRAM/DAY (RECEIVED DURING LOADING DOSE OF RITUXIMAB)
     Route: 065
     Dates: start: 201606
  31. DAPSONE [Suspect]
     Active Substance: DAPSONE
     Dosage: 75 MILLIGRAM/DAY (RECEIVED ON RELAPSE OF PEMPHIGUS VULGARIS)
     Route: 065
     Dates: start: 2017
  32. DAPSONE [Suspect]
     Active Substance: DAPSONE
     Dosage: UNK
     Route: 065
  33. CYCLOPHOSPHAMIDE [Suspect]
     Active Substance: CYCLOPHOSPHAMIDE
     Indication: Pemphigus
     Dosage: 150 MILLIGRAM/DAY
     Route: 065
     Dates: start: 2018
  34. CYCLOPHOSPHAMIDE [Suspect]
     Active Substance: CYCLOPHOSPHAMIDE
     Dosage: UNK
     Route: 065
  35. CYCLOPHOSPHAMIDE [Suspect]
     Active Substance: CYCLOPHOSPHAMIDE
     Dosage: UNK
     Route: 065
  36. RITUXIMAB [Concomitant]
     Active Substance: RITUXIMAB
     Indication: Pemphigus
     Dosage: 1000 MILLIGRAM (RECEIVED LOADING DOSE ON DAY 0)
     Route: 042
     Dates: start: 201606
  37. RITUXIMAB [Concomitant]
     Active Substance: RITUXIMAB
     Dosage: 1000 MILLIGRAM (RECEIVED LOADING DOSE ON DAY 15)
     Route: 042
     Dates: start: 2016
  38. RITUXIMAB [Concomitant]
     Active Substance: RITUXIMAB
     Dosage: 1000 MILLIGRAM (RECEIVED ONCE ON RELAPSE OF PEMPHIGUS VULGARIS)
     Route: 042
     Dates: start: 2017
  39. RITUXIMAB [Concomitant]
     Active Substance: RITUXIMAB
     Dosage: 1000 MILLIGRAM (RECEIVED ONCE DURING DESENSITISATION)
     Route: 042
     Dates: start: 2018
  40. OCREVUS [Concomitant]
     Active Substance: OCRELIZUMAB
     Indication: Pemphigus
     Dosage: 300 MILLIGRAM (RECEIVED AS LOADING DOSE ON DAY 0)
     Route: 042
     Dates: start: 2018
  41. OCREVUS [Concomitant]
     Active Substance: OCRELIZUMAB
     Dosage: 300 MILLIGRAM (RECEIVED AS LOADING DOSE ON DAY 15)
     Route: 042
     Dates: start: 2018
  42. OCREVUS [Concomitant]
     Active Substance: OCRELIZUMAB
     Dosage: 300 MILLIGRAM (RECEIVED AS LOADING DOSE AT 6 MONTHS)
     Route: 042
     Dates: start: 2019
  43. OCREVUS [Concomitant]
     Active Substance: OCRELIZUMAB
     Dosage: 600 MILLIGRAM (RECEIVED AS MAINTENANCE DOSE AT 12, 18 AND 24 MONTHS)
     Route: 042

REACTIONS (3)
  - Drug ineffective [Unknown]
  - Fatigue [Unknown]
  - Off label use [Unknown]
